FAERS Safety Report 11831743 (Version 1)
Quarter: 2015Q4

REPORT INFORMATION
  Report Type: Spontaneous
  Country: US (occurrence: US)
  Receive Date: 20151214
  Receipt Date: 20151214
  Transmission Date: 20160305
  Serious: Yes (Other)
  Sender: FDA-Public Use
  Company Number: US-PFIZER INC-2015435456

PATIENT
  Age: 11 Year
  Sex: Male

DRUGS (4)
  1. METRONIDAZOLE. [Suspect]
     Active Substance: METRONIDAZOLE
     Dosage: UNK
  2. SODIUM CITRATE/CITRIC ACID [Concomitant]
     Dosage: UNK
  3. FD+C BLUE NO 2 [Suspect]
     Active Substance: INDIGOTINDISULFONATE SODIUM
     Dosage: UNK
  4. AZATHIOPRINE. [Concomitant]
     Active Substance: AZATHIOPRINE
     Dosage: UNK

REACTIONS (2)
  - Reaction to drug excipients [Unknown]
  - Dermatitis [Unknown]
